FAERS Safety Report 7383188-2 (Version None)
Quarter: 2011Q1

REPORT INFORMATION
  Report Type: 
  Country: None (occurrence: None)
  Receive Date: 20110330
  Receipt Date: 20110315
  Transmission Date: 20110831
  Serious: Yes (Other)
  Sender: FDA-Public Use
  Company Number: GB-MYLANLABS-2011S1003641

PATIENT
  Sex: Male

DRUGS (15)
  1. PETHIDINE [Concomitant]
     Indication: PAIN
  2. PARACETAMOL [Concomitant]
     Indication: PAIN
  3. CLOPIDOGREL [Concomitant]
     Indication: CARDIAC DISORDER
  4. RAMIPRIL [Suspect]
     Indication: CARDIAC DISORDER
  5. COVERSYL ARGININE [Concomitant]
     Indication: CARDIAC DISORDER
  6. IBUPROFEN [Concomitant]
     Indication: PAIN
  7. PEPPERMINT OIL [Concomitant]
     Indication: PRODUCT USED FOR UNKNOWN INDICATION
     Dosage: 3-4 DROPS
  8. YARROW TCT [Concomitant]
     Indication: PRODUCT USED FOR UNKNOWN INDICATION
  9. ASPIRIN [Concomitant]
     Indication: PRODUCT USED FOR UNKNOWN INDICATION
  10. BISOPROLOL [Suspect]
     Indication: CARDIAC DISORDER
  11. TRAMADOL [Concomitant]
     Indication: PAIN
  12. ROSUVASTATIN [Concomitant]
     Indication: PRODUCT USED FOR UNKNOWN INDICATION
  13. HYDROMOL /00906601/ [Concomitant]
     Indication: PSORIASIS
  14. DERMOVATE [Concomitant]
     Indication: PSORIASIS
  15. NEBIVOLOL [Concomitant]
     Indication: PRODUCT USED FOR UNKNOWN INDICATION
     Dosage: DROPPED FROM 5 MG

REACTIONS (2)
  - PSORIASIS [None]
  - OSTEOARTHRITIS [None]
